FAERS Safety Report 5371438-3 (Version None)
Quarter: 2007Q2

REPORT INFORMATION
  Report Type: 
  Country: None (occurrence: None)
  Receive Date: 20070622
  Receipt Date: 20070611
  Transmission Date: 20071010
  Serious: Yes (Hospitalization)
  Sender: FDA-Public Use
  Company Number: CLOF-10556

PATIENT
  Sex: 0

DRUGS (4)
  1. CLOFARABINE. MFR: GENZYME [Suspect]
     Indication: ACUTE LEUKAEMIA
  2. ACETAMINOPHEN [Concomitant]
  3. ALLOPURINOL [Concomitant]
  4. HYDROCORTISONE [Concomitant]

REACTIONS (9)
  - ANAEMIA [None]
  - BLOOD BILIRUBIN INCREASED [None]
  - DYSPNOEA [None]
  - ENTEROCOCCAL INFECTION [None]
  - FEBRILE NEUTROPENIA [None]
  - NEUTROPENIA [None]
  - PLEURAL EFFUSION [None]
  - PNEUMONIA FUNGAL [None]
  - PULMONARY HYPERTENSION [None]
